FAERS Safety Report 7432118-3 (Version None)
Quarter: 2011Q2

REPORT INFORMATION
  Report Type: 
  Country: None (occurrence: None)
  Receive Date: 20110422
  Receipt Date: 20110419
  Transmission Date: 20111010
  Serious: Yes (Hospitalization, Other)
  Sender: FDA-Public Use
  Company Number: GB-PFIZER INC-2011086033

PATIENT
  Age: 24 Year
  Sex: Female

DRUGS (2)
  1. MISOPROSTOL [Suspect]
     Indication: ABORTION INDUCED
     Dosage: UNK
     Dates: start: 20100612, end: 20100612
  2. MIFEGYNE [Suspect]
     Indication: ABORTION INDUCED
     Dosage: 200 MG, SINGLE
     Route: 048
     Dates: start: 20100611, end: 20100611

REACTIONS (3)
  - DRUG INEFFECTIVE FOR UNAPPROVED INDICATION [None]
  - INAPPROPRIATE SCHEDULE OF DRUG ADMINISTRATION [None]
  - INDUCED ABORTION FAILED [None]
